FAERS Safety Report 10395394 (Version 1)
Quarter: 2014Q1

REPORT INFORMATION
  Report Type: Spontaneous
  Country: US (occurrence: None)
  Receive Date: 20130107
  Receipt Date: 20130107
  Transmission Date: 20141002
  Serious: No
  Sender: FDA-Public Use
  Company Number: PHEH2012US016587

PATIENT
  Age: 23 Year
  Sex: Male

DRUGS (1)
  1. GILENYA (FTY) CAPSULE, 0.5MG [Suspect]
     Indication: MULTIPLE SCLEROSIS
     Route: 048
     Dates: start: 20120731

REACTIONS (6)
  - Aphagia [None]
  - Nausea [None]
  - Vomiting [None]
  - Multiple sclerosis relapse [None]
  - Headache [None]
  - Diarrhoea [None]
